FAERS Safety Report 12271604 (Version 1)
Quarter: 2016Q2

REPORT INFORMATION
  Report Type: Spontaneous
  Country: TH (occurrence: TH)
  Receive Date: 20160415
  Receipt Date: 20160415
  Transmission Date: 20160815
  Serious: Yes (Other)
  Sender: FDA-Public Use
  Company Number: TH-JNJFOC-20160406828

PATIENT

DRUGS (22)
  1. ANESTHETICS [Suspect]
     Active Substance: UNSPECIFIED INGREDIENT
     Indication: DRUG PROVOCATION TEST
     Route: 065
  2. PIPERACILLIN [Suspect]
     Active Substance: PIPERACILLIN
     Indication: DRUG PROVOCATION TEST
     Route: 065
  3. CEFDINIR. [Suspect]
     Active Substance: CEFDINIR
     Indication: DRUG PROVOCATION TEST
     Route: 065
  4. MEROPENEM. [Suspect]
     Active Substance: MEROPENEM
     Indication: DRUG PROVOCATION TEST
     Route: 065
  5. CEFOTAXIME [Suspect]
     Active Substance: CEFOTAXIME SODIUM
     Indication: DRUG PROVOCATION TEST
     Route: 065
  6. PIPERACILLIN/TAZOBACTAM [Suspect]
     Active Substance: PIPERACILLIN SODIUM\TAZOBACTAM SODIUM
     Indication: DRUG PROVOCATION TEST
     Route: 065
  7. CEPHALOSPORIN NOS [Suspect]
     Active Substance: UNSPECIFIED INGREDIENT
     Indication: DRUG PROVOCATION TEST
     Route: 065
  8. PARACETAMOL [Suspect]
     Active Substance: ACETAMINOPHEN
     Route: 065
  9. CHEMOTHERAPEUTICS [Suspect]
     Active Substance: UNSPECIFIED INGREDIENT
     Indication: DRUG PROVOCATION TEST
     Route: 065
  10. NSAIDS [Suspect]
     Active Substance: UNSPECIFIED INGREDIENT
     Indication: DRUG PROVOCATION TEST
     Route: 065
  11. CEFALEXIN [Suspect]
     Active Substance: CEPHALEXIN
     Indication: DRUG PROVOCATION TEST
     Route: 065
  12. MEPIVACAINE [Suspect]
     Active Substance: MEPIVACAINE\MEPIVACAINE HYDROCHLORIDE
     Indication: DRUG PROVOCATION TEST
     Route: 065
  13. CYCLOSPORINE. [Suspect]
     Active Substance: CYCLOSPORINE
     Indication: DRUG PROVOCATION TEST
     Route: 065
  14. VACCINES [Suspect]
     Active Substance: UNSPECIFIED INGREDIENT
     Indication: DRUG PROVOCATION TEST
     Route: 065
  15. COTRIMOXAZOLE [Suspect]
     Active Substance: SULFAMETHOXAZOLE\TRIMETHOPRIM
     Indication: DRUG PROVOCATION TEST
     Route: 065
  16. ANTIBIOTICS [Suspect]
     Active Substance: UNSPECIFIED INGREDIENT
     Indication: DRUG PROVOCATION TEST
     Route: 065
  17. DRUGS FOR TREATMENT OF TUBERCULOSIS [Suspect]
     Active Substance: UNSPECIFIED INGREDIENT
     Indication: DRUG PROVOCATION TEST
     Route: 065
  18. MACROLIDES [Suspect]
     Active Substance: UNSPECIFIED INGREDIENT
     Indication: DRUG PROVOCATION TEST
     Route: 065
  19. CARBOPLATIN. [Suspect]
     Active Substance: CARBOPLATIN
     Indication: DRUG PROVOCATION TEST
     Route: 065
  20. PARACETAMOL [Suspect]
     Active Substance: ACETAMINOPHEN
     Indication: DRUG PROVOCATION TEST
     Route: 065
  21. ALL OTHER THERAPEUTIC PRODUCTS [Suspect]
     Active Substance: UNSPECIFIED INGREDIENT
     Indication: DRUG PROVOCATION TEST
     Route: 065
  22. DAPSONE. [Suspect]
     Active Substance: DAPSONE
     Indication: DRUG PROVOCATION TEST
     Route: 065

REACTIONS (10)
  - Rash maculo-papular [Unknown]
  - Anaphylactic reaction [Unknown]
  - Angioedema [Unknown]
  - Wheezing [Unknown]
  - Vomiting [Unknown]
  - Conjunctivitis [Unknown]
  - Dyspnoea [Unknown]
  - Product use issue [Unknown]
  - Off label use [Unknown]
  - Urticaria [Unknown]
